FAERS Safety Report 9712098 (Version 1)
Quarter: 2013Q4

REPORT INFORMATION
  Report Type: Spontaneous
  Country: US (occurrence: US)
  Receive Date: 20131126
  Receipt Date: 20131126
  Transmission Date: 20140711
  Serious: No
  Sender: FDA-Public Use
  Company Number: US-BRISTOL-MYERS SQUIBB COMPANY-18844720

PATIENT
  Age: 47 Year
  Sex: Female
  Weight: 136.05 kg

DRUGS (1)
  1. BYDUREON [Suspect]
     Dosage: INJECTION
     Route: 058
     Dates: start: 20130326

REACTIONS (3)
  - Nausea [Unknown]
  - Injection site erythema [Unknown]
  - Injection site pruritus [Unknown]
